FAERS Safety Report 17014991 (Version 2)
Quarter: 2019Q4

REPORT INFORMATION
  Report Type: Spontaneous
  Country: FR (occurrence: FR)
  Receive Date: 20191111
  Receipt Date: 20191114
  Transmission Date: 20200122
  Serious: Yes (Death, Hospitalization, Other)
  Sender: FDA-Public Use
  Company Number: NVSC2019FR028666

PATIENT
  Age: 38 Year
  Sex: Female

DRUGS (1)
  1. BETAMETHASONE. [Suspect]
     Active Substance: BETAMETHASONE
     Indication: PRURITUS
     Dosage: 600 G, QMO (20 TUBES PER MONTH OR 7.2 KG/YEAR)
     Route: 061

REACTIONS (9)
  - Cushing^s syndrome [Unknown]
  - Septic shock [Unknown]
  - Fracture [Unknown]
  - Wound necrosis [Unknown]
  - Adrenal insufficiency [Unknown]
  - Osteoporosis [Unknown]
  - Skin atrophy [Unknown]
  - Intertrigo [Unknown]
  - Multiple organ dysfunction syndrome [Fatal]
